FAERS Safety Report 19731742 (Version 6)
Quarter: 2021Q4

REPORT INFORMATION
  Report Type: Report from Study
  Country: US (occurrence: US)
  Receive Date: 20210820
  Receipt Date: 20211029
  Transmission Date: 20220303
  Serious: Yes (Life-Threatening, Hospitalization, Disabling, Other)
  Sender: FDA-Public Use
  Company Number: NVSC2021US182750

PATIENT
  Age: 58 Year
  Sex: Female

DRUGS (3)
  1. ENTRESTO [Suspect]
     Active Substance: SACUBITRIL\VALSARTAN
     Indication: Product used for unknown indication
     Dosage: 50 MG (24/26 MG), BID
     Route: 048
     Dates: start: 20210728
  2. ENTRESTO [Suspect]
     Active Substance: SACUBITRIL\VALSARTAN
     Dosage: 200 MG (97/103 MG), BID
     Route: 048
  3. SOTALOL [Suspect]
     Active Substance: SOTALOL
     Indication: Product used for unknown indication
     Dosage: UNK
     Route: 065

REACTIONS (17)
  - Suicidal ideation [Not Recovered/Not Resolved]
  - Depression [Not Recovered/Not Resolved]
  - Fatigue [Recovering/Resolving]
  - Gait disturbance [Not Recovered/Not Resolved]
  - Acute kidney injury [Recovered/Resolved]
  - Asthenia [Not Recovered/Not Resolved]
  - Dysstasia [Recovered/Resolved]
  - Insomnia [Not Recovered/Not Resolved]
  - Memory impairment [Recovering/Resolving]
  - Confusional state [Recovering/Resolving]
  - Malaise [Unknown]
  - Hernia [Not Recovered/Not Resolved]
  - Concomitant disease aggravated [Not Recovered/Not Resolved]
  - Peripheral swelling [Not Recovered/Not Resolved]
  - Diarrhoea [Not Recovered/Not Resolved]
  - Nausea [Not Recovered/Not Resolved]
  - Blood pressure inadequately controlled [Recovering/Resolving]

NARRATIVE: CASE EVENT DATE: 20210728
